FAERS Safety Report 9883796 (Version 1)
Quarter: 2014Q1

REPORT INFORMATION
  Report Type: Spontaneous
  Country: GB (occurrence: GB)
  Receive Date: 20140210
  Receipt Date: 20140210
  Transmission Date: 20141002
  Serious: Yes (Disabling, Other)
  Sender: FDA-Public Use
  Company Number: GB-009507513-1402GBR000193

PATIENT
  Age: 6 Year
  Sex: Male

DRUGS (5)
  1. SINGULAIR [Suspect]
     Indication: ASTHMA
     Dosage: 5 MG, UNK
     Route: 048
     Dates: start: 20110601, end: 20120112
  2. CLENIL MODULITE [Concomitant]
  3. LORATADINE [Concomitant]
  4. SALAMOL [Concomitant]
  5. SALMETEROL [Concomitant]

REACTIONS (4)
  - Aggression [Not Recovered/Not Resolved]
  - Autism [Not Recovered/Not Resolved]
  - Personality change [Not Recovered/Not Resolved]
  - Suicidal ideation [Not Recovered/Not Resolved]
